FAERS Safety Report 6953960-9 (Version None)
Quarter: 2010Q3

REPORT INFORMATION
  Report Type: 
  Country: None (occurrence: None)
  Receive Date: 20100829
  Receipt Date: 20100623
  Transmission Date: 20110219
  Serious: No
  Sender: FDA-Public Use
  Company Number: US-ABBOTT-10P-163-0653933-00

PATIENT
  Sex: Female
  Weight: 68.1 kg

DRUGS (7)
  1. NIASPAN [Suspect]
     Indication: BLOOD TRIGLYCERIDES INCREASED
     Dates: start: 20100610
  2. SIMVASTATIN [Concomitant]
     Indication: BLOOD CHOLESTEROL INCREASED
  3. COREG [Concomitant]
     Indication: HYPERTENSION
  4. SPIRONOLACTONE [Concomitant]
     Indication: HYPERTENSION
  5. LASIX [Concomitant]
     Indication: FLUID RETENTION
  6. POTASSIUM [Concomitant]
     Indication: ELECTROLYTE SUBSTITUTION THERAPY
  7. FORTICAL [Concomitant]
     Indication: OSTEOPOROSIS

REACTIONS (2)
  - ERYTHEMA [None]
  - FLUSHING [None]
